FAERS Safety Report 14825137 (Version 2)
Quarter: 2018Q2

REPORT INFORMATION
  Report Type: Spontaneous
  Country: BE (occurrence: BE)
  Receive Date: 20180430
  Receipt Date: 20180619
  Transmission Date: 20180711
  Serious: Yes (Other)
  Sender: FDA-Public Use
  Company Number: BE-SUN PHARMACEUTICAL INDUSTRIES LTD-2018R1-170950

PATIENT
  Age: 15 Year
  Sex: Male

DRUGS (1)
  1. ISOTRETINOIN. [Suspect]
     Active Substance: ISOTRETINOIN
     Indication: PRODUCT USED FOR UNKNOWN INDICATION
     Route: 065

REACTIONS (5)
  - Tendonitis [Recovered/Resolved]
  - Myositis [Recovered/Resolved]
  - Vasculitis [Recovered/Resolved]
  - Arthritis [Recovered/Resolved]
  - Antineutrophil cytoplasmic antibody positive [Recovered/Resolved]
